FAERS Safety Report 7700254-X (Version None)
Quarter: 2011Q3

REPORT INFORMATION
  Report Type: 
  Country: None (occurrence: None)
  Receive Date: 20110822
  Receipt Date: 20110816
  Transmission Date: 20111222
  Serious: Yes (Hospitalization, Other)
  Sender: FDA-Public Use
  Company Number: US-BAYER-2011-062589

PATIENT
  Age: 75 Year
  Sex: Male

DRUGS (2)
  1. SORAFENIB (RAF KINASE INHIBITOR) [Suspect]
     Indication: HEPATIC CANCER METASTATIC
     Dosage: 400 MG, BID
     Route: 048
     Dates: start: 20110716, end: 20110808
  2. CONTRAST MEDIA [Concomitant]

REACTIONS (13)
  - ABASIA [None]
  - FEEDING DISORDER [None]
  - DYSGEUSIA [None]
  - BLOOD GLUCOSE DECREASED [None]
  - DIARRHOEA [None]
  - ATRIAL FIBRILLATION [None]
  - DYSPHONIA [None]
  - PAIN [None]
  - NERVOUSNESS [None]
  - DYSPNOEA [None]
  - CARDIAC FAILURE CONGESTIVE [None]
  - BLOOD SODIUM DECREASED [None]
  - BLOOD POTASSIUM INCREASED [None]
